FAERS Safety Report 4534451-1 (Version None)
Quarter: 2004Q4

REPORT INFORMATION
  Report Type: 
  Country: None (occurrence: None)
  Receive Date: 20041214
  Receipt Date: 20041101
  Transmission Date: 20050328
  Serious: No
  Sender: FDA-Public Use
  Company Number: 2004242766US

PATIENT
  Age: 93 Year
  Sex: Female
  Weight: 45.4 kg

DRUGS (6)
  1. BEXTRA [Suspect]
     Indication: ARTHRITIS
     Dosage: 10 MG; 20 MG  : QD
     Dates: start: 20041027
  2. ECOTRIN [Concomitant]
  3. LISINOPRIL [Concomitant]
  4. FOLIC ACID [Concomitant]
  5. MULTIVITAMINS (PANTHENOL, RETINOL, ERGOCALCIFEROL) [Concomitant]
  6. STOOL SOFTENER (DOCUSATE SODIUM) [Concomitant]

REACTIONS (7)
  - DISCOMFORT [None]
  - DRUG INEFFECTIVE [None]
  - EATING DISORDER [None]
  - ERUCTATION [None]
  - FALL [None]
  - INSOMNIA [None]
  - NAUSEA [None]
